FAERS Safety Report 5971732-9 (Version None)
Quarter: 2008Q4

REPORT INFORMATION
  Report Type: 
  Country: None (occurrence: None)
  Receive Date: 20081126
  Receipt Date: 20081126
  Transmission Date: 20090506
  Serious: Yes (Hospitalization)
  Sender: FDA-Public Use
  Company Number: None

PATIENT
  Age: 60 Year
  Sex: Male

DRUGS (2)
  1. INSULIN [Suspect]
     Indication: DIABETES MELLITUS
     Dosage: 8 UNITS TID SQ
     Route: 058
     Dates: start: 20081024
  2. INSULIN [Suspect]
     Indication: DIABETES MELLITUS
     Dosage: 30 UNITS EVERY DAY SQ
     Route: 058
     Dates: start: 20081024

REACTIONS (7)
  - AMNESIA [None]
  - BRAIN NATRIURETIC PEPTIDE INCREASED [None]
  - CHEST PAIN [None]
  - HYPOGLYCAEMIA [None]
  - PAIN IN EXTREMITY [None]
  - TROPONIN INCREASED [None]
  - WHEEZING [None]
